FAERS Safety Report 5964332-8 (Version None)
Quarter: 2008Q4

REPORT INFORMATION
  Report Type: 
  Country: None (occurrence: None)
  Receive Date: 20081124
  Receipt Date: 20081117
  Transmission Date: 20090506
  Serious: Yes (Life-Threatening, Hospitalization, Other)
  Sender: FDA-Public Use
  Company Number: US-MERCK-0702USA04419

PATIENT
  Age: 75 Year
  Sex: Male

DRUGS (15)
  1. JANUVIA [Suspect]
     Indication: DIABETES MELLITUS INADEQUATE CONTROL
     Route: 048
     Dates: start: 20061204, end: 20061226
  2. JANUVIA [Suspect]
     Route: 048
     Dates: start: 20061120, end: 20061201
  3. ZOCOR [Suspect]
     Indication: HYPERLIPIDAEMIA
     Route: 048
     Dates: start: 20060801, end: 20061226
  4. OLMESARTAN MEDOXOMIL [Concomitant]
     Indication: HYPERTENSION
     Route: 048
     Dates: end: 20061226
  5. OLMESARTAN MEDOXOMIL [Concomitant]
     Indication: RENAL FAILURE CHRONIC
     Route: 048
     Dates: end: 20061226
  6. ZETIA [Suspect]
     Indication: HYPERLIPIDAEMIA
     Route: 048
     Dates: start: 20060801, end: 20061226
  7. BUMETANIDE [Concomitant]
     Indication: CARDIAC FAILURE CONGESTIVE
     Route: 048
  8. INSULIN [Concomitant]
     Route: 065
  9. AMIODARONE [Concomitant]
     Route: 065
  10. ASPIRIN [Concomitant]
     Route: 065
  11. CARVEDILOL [Concomitant]
     Route: 065
  12. GLIPIZIDE [Concomitant]
     Route: 065
  13. LEVOTHYROXINE SODIUM [Concomitant]
     Route: 065
  14. METOLAZONE [Concomitant]
     Route: 065
  15. CLOPIDOGREL BISULFATE [Concomitant]
     Route: 065

REACTIONS (3)
  - DRUG INTERACTION [None]
  - RENAL FAILURE ACUTE [None]
  - RHABDOMYOLYSIS [None]
